FAERS Safety Report 4704412-8 (Version None)
Quarter: 2005Q2

REPORT INFORMATION
  Report Type: 
  Country: None (occurrence: None)
  Receive Date: 20050630
  Receipt Date: 20050624
  Transmission Date: 20051028
  Serious: Yes (Hospitalization)
  Sender: FDA-Public Use
  Company Number: FR-GLAXOSMITHKLINE-B0385597A

PATIENT
  Age: 61 Year
  Sex: Female
  Weight: 48 kg

DRUGS (6)
  1. ONDANSETRON [Suspect]
     Route: 042
     Dates: start: 20050519, end: 20050519
  2. AZANTAC [Suspect]
     Route: 042
     Dates: start: 20050519, end: 20050519
  3. ARACYTINE [Suspect]
     Route: 042
     Dates: start: 20050519, end: 20050519
  4. SOLU-MEDROL [Suspect]
     Route: 042
     Dates: start: 20050519, end: 20050519
  5. ZAVEDOS [Suspect]
     Route: 042
     Dates: start: 20050519, end: 20050519
  6. ACUPAN [Suspect]
     Route: 042
     Dates: start: 20050519, end: 20050519

REACTIONS (2)
  - INCORRECT ROUTE OF DRUG ADMINISTRATION [None]
  - PLEURAL EFFUSION [None]
